FAERS Safety Report 4999237-2 (Version None)
Quarter: 2006Q2

REPORT INFORMATION
  Report Type: 
  Country: None (occurrence: None)
  Receive Date: 20060511
  Receipt Date: 20060420
  Transmission Date: 20061013
  Serious: Yes (Death, Hospitalization, Other)
  Sender: FDA-Public Use
  Company Number: PHEH2006US05195

PATIENT
  Age: 37 Year
  Sex: Male

DRUGS (5)
  1. EXJADE [Suspect]
     Indication: BLOOD IRON INCREASED
     Dosage: 1250 MG, QD
     Route: 048
     Dates: start: 20060330
  2. FOLIC ACID [Concomitant]
  3. ALDACTONE [Concomitant]
  4. LASIX [Concomitant]
  5. OXYCODONE [Concomitant]

REACTIONS (20)
  - ACTIVATED PARTIAL THROMBOPLASTIN TIME [None]
  - ACTIVITIES OF DAILY LIVING IMPAIRED [None]
  - AMMONIA INCREASED [None]
  - ASCITES [None]
  - ASTHENIA [None]
  - BLOOD CREATININE INCREASED [None]
  - BLOOD IRON DECREASED [None]
  - BLOOD UREA INCREASED [None]
  - CONCOMITANT DISEASE PROGRESSION [None]
  - DIFFICULTY IN WALKING [None]
  - DYSPNOEA [None]
  - FAILURE TO THRIVE [None]
  - HEPATIC CIRRHOSIS [None]
  - HEPATIC FAILURE [None]
  - JAUNDICE [None]
  - MALAISE [None]
  - MENTAL STATUS CHANGES [None]
  - ORAL INTAKE REDUCED [None]
  - PLATELET COUNT DECREASED [None]
  - PROTHROMBIN LEVEL INCREASED [None]
